FAERS Safety Report 4648682-3 (Version None)
Quarter: 2005Q2

REPORT INFORMATION
  Report Type: 
  Country: None (occurrence: None)
  Receive Date: 20050429
  Receipt Date: 20050426
  Transmission Date: 20051028
  Serious: Yes (Other)
  Sender: FDA-Public Use
  Company Number: PHRM2005FR01389

PATIENT
  Age: 12 Year
  Sex: Male

DRUGS (1)
  1. TRILEPTAL [Suspect]
     Dosage: 750 MG DAILY
     Route: 048
     Dates: start: 20020101

REACTIONS (2)
  - ABDOMINAL PAIN [None]
  - HENOCH-SCHONLEIN PURPURA [None]
